FAERS Safety Report 6858965-4 (Version None)
Quarter: 2010Q3

REPORT INFORMATION
  Report Type: 
  Country: None (occurrence: None)
  Receive Date: 20100719
  Receipt Date: 20080218
  Transmission Date: 20110219
  Serious: No
  Sender: FDA-Public Use
  Company Number: US-PFIZER INC-2008016631

PATIENT
  Sex: Male
  Weight: 81.8 kg

DRUGS (3)
  1. CHANTIX [Suspect]
     Indication: SMOKING CESSATION THERAPY
     Dates: start: 20070101, end: 20080204
  2. XANAX [Suspect]
     Indication: ANXIETY
  3. VITAMINS [Concomitant]

REACTIONS (4)
  - DEPRESSION [None]
  - DRUG INEFFECTIVE [None]
  - POLLAKIURIA [None]
  - SLEEP DISORDER [None]
